FAERS Safety Report 8963845 (Version 1)
Quarter: 2012Q4

REPORT INFORMATION
  Report Type: 
  Country: GB (occurrence: US)
  Receive Date: 20121214
  Receipt Date: 20121214
  Transmission Date: 20130627
  Serious: Yes (Death, Hospitalization)
  Sender: FDA-Public Use
  Company Number: US-009507513-1212USA004436

PATIENT
  Age: 60 Year
  Sex: Female
  Weight: 113.4 kg

DRUGS (8)
  1. TEMODAR [Suspect]
     Indication: GLIOBLASTOMA
     Dosage: 160 mg, qd
     Route: 065
     Dates: start: 20100517, end: 20100614
  2. BEVACIZUMAB [Suspect]
     Indication: GLIOBLASTOMA
     Dosage: 1134 mg, every 2 weeks
     Route: 042
     Dates: start: 20100517, end: 20100614
  3. KEPPRA [Concomitant]
     Dosage: UNK
  4. CALCIUM CITRATE [Concomitant]
     Dosage: UNK
  5. VYTORIN [Concomitant]
     Dosage: UNK
  6. METFORMIN [Concomitant]
  7. ACTOS [Concomitant]
  8. RAMIPRIL [Concomitant]

REACTIONS (3)
  - Sepsis [Fatal]
  - Thrombocytopenia [Unknown]
  - Hyperglycaemia [Unknown]
